FAERS Safety Report 6899355-8 (Version None)
Quarter: 2010Q3

REPORT INFORMATION
  Report Type: 
  Country: None (occurrence: None)
  Receive Date: 20100803
  Receipt Date: 20090413
  Transmission Date: 20110219
  Serious: No
  Sender: FDA-Public Use
  Company Number: US-PFIZER INC-2009176627

PATIENT
  Sex: Male
  Weight: 97.522 kg

DRUGS (6)
  1. AMLODIPINE BESYLATE [Suspect]
     Indication: HYPERTENSION
     Dosage: 5 MG, 1X/DAY
     Route: 048
     Dates: start: 20070420, end: 20070101
  2. NORVASC [Concomitant]
     Indication: HYPERTENSION
     Dosage: 5 MG, 1X/DAY
     Route: 048
  3. PROTONIX [Concomitant]
     Dosage: UNK
  4. PEPCID [Concomitant]
     Dosage: UNK
  5. CARAFATE [Concomitant]
     Dosage: UNK
  6. REGLAN [Concomitant]
     Dosage: UNK

REACTIONS (1)
  - ABDOMINAL PAIN [None]
